FAERS Safety Report 7369489-2 (Version None)
Quarter: 2011Q1

REPORT INFORMATION
  Report Type: 
  Country: None (occurrence: None)
  Receive Date: 20110323
  Receipt Date: 20110225
  Transmission Date: 20110831
  Serious: No
  Sender: FDA-Public Use
  Company Number: US-B.I. PHARMACEUTICALS,INC./RIDGEFIELD-2009-BP-02303BP

PATIENT
  Sex: Female

DRUGS (3)
  1. SUPPLEMENTS [Concomitant]
     Indication: PROPHYLAXIS
  2. MAXAIR [Concomitant]
     Indication: CHRONIC OBSTRUCTIVE PULMONARY DISEASE
  3. SPIRIVA [Suspect]
     Indication: CHRONIC OBSTRUCTIVE PULMONARY DISEASE
     Dosage: 18 MCG
     Route: 055
     Dates: start: 20040101

REACTIONS (4)
  - URINARY TRACT INFECTION [None]
  - DRY MOUTH [None]
  - DYSPNOEA [None]
  - CONSTIPATION [None]
